FAERS Safety Report 10827132 (Version 2)
Quarter: 2016Q1

REPORT INFORMATION
  Report Type: Report from Study
  Country: US (occurrence: US)
  Receive Date: 20150219
  Receipt Date: 20160125
  Transmission Date: 20160525
  Serious: Yes (Other)
  Sender: FDA-Public Use
  Company Number: US-ABBVIE-14K-163-1319892-00

PATIENT
  Age: 79 Year
  Sex: Female
  Weight: 68.37 kg

DRUGS (1)
  1. HUMIRA [Suspect]
     Active Substance: ADALIMUMAB
     Indication: RHEUMATOID ARTHRITIS
     Route: 058
     Dates: start: 20120207

REACTIONS (3)
  - Fatigue [Unknown]
  - Cerebrovascular accident [Recovering/Resolving]
  - Low density lipoprotein decreased [Unknown]

NARRATIVE: CASE EVENT DATE: 20141020
